FAERS Safety Report 11564528 (Version 2)
Quarter: 2015Q4

REPORT INFORMATION
  Report Type: Spontaneous
  Country: US (occurrence: US)
  Receive Date: 20150928
  Receipt Date: 20151002
  Transmission Date: 20160304
  Serious: No
  Sender: FDA-Public Use
  Company Number: CHPA2015US011404

PATIENT
  Sex: Female

DRUGS (1)
  1. VOLTAREN [Suspect]
     Active Substance: DICLOFENAC SODIUM
     Indication: HYPOAESTHESIA
     Dosage: UNK
     Route: 061
     Dates: start: 2015

REACTIONS (4)
  - Burning sensation [Recovered/Resolved]
  - Product use issue [Unknown]
  - Drug administered at inappropriate site [Unknown]
  - Asthenia [Unknown]

NARRATIVE: CASE EVENT DATE: 2015
